FAERS Safety Report 9729056 (Version 1)
Quarter: 2013Q4

REPORT INFORMATION
  Report Type: Spontaneous
  Country: US (occurrence: US)
  Receive Date: 20131204
  Receipt Date: 20131204
  Transmission Date: 20140711
  Serious: Yes (Hospitalization)
  Sender: FDA-Public Use
  Company Number: US-BAYER-2013-144436

PATIENT
  Age: 41 Year
  Sex: Female
  Weight: 71.66 kg

DRUGS (3)
  1. YASMIN [Suspect]
  2. ZOLOFT [Concomitant]
  3. VICODIN [Concomitant]

REACTIONS (2)
  - Deep vein thrombosis [Recovered/Resolved]
  - Pulmonary embolism [Recovered/Resolved]
